FAERS Safety Report 23606207 (Version 2)
Quarter: 2024Q1

REPORT INFORMATION
  Report Type: Spontaneous
  Country: NZ (occurrence: NZ)
  Receive Date: 20240307
  Receipt Date: 20240322
  Transmission Date: 20240410
  Serious: Yes (Hospitalization)
  Sender: FDA-Public Use
  Company Number: NZ-PFIZER INC-PV202400029602

PATIENT
  Sex: Male

DRUGS (2)
  1. ENBREL [Suspect]
     Active Substance: ETANERCEPT
     Indication: Product used for unknown indication
     Dosage: UNK
     Route: 065
     Dates: start: 20240203
  2. ENBREL [Suspect]
     Active Substance: ETANERCEPT
     Dosage: UNK
     Route: 065
     Dates: start: 20240315

REACTIONS (5)
  - Infection [Recovered/Resolved]
  - Malaise [Recovered/Resolved]
  - Asthenia [Recovered/Resolved]
  - Arthralgia [Recovered/Resolved]
  - Myalgia [Recovered/Resolved]
